FAERS Safety Report 4801582-8 (Version None)
Quarter: 2005Q4

REPORT INFORMATION
  Report Type: 
  Country: None (occurrence: None)
  Receive Date: 20051011
  Receipt Date: 20050927
  Transmission Date: 20060501
  Serious: Yes (Hospitalization)
  Sender: FDA-Public Use
  Company Number: 2005129197

PATIENT
  Age: 77 Year
  Sex: Male

DRUGS (1)
  1. DETROL LA [Suspect]
     Indication: MICTURITION URGENCY

REACTIONS (2)
  - BARRETT'S OESOPHAGUS [None]
  - URINARY TRACT INFECTION [None]
